FAERS Safety Report 18920637 (Version 1)
Quarter: 2021Q1

REPORT INFORMATION
  Report Type: Spontaneous
  Country: FR (occurrence: FR)
  Receive Date: 20210222
  Receipt Date: 20210222
  Transmission Date: 20210420
  Serious: Yes (Other)
  Sender: FDA-Public Use
  Company Number: FR-ROCHE-2772391

PATIENT
  Age: 44 Year
  Sex: Female

DRUGS (1)
  1. VALIUM [Suspect]
     Active Substance: DIAZEPAM
     Indication: PAIN
     Route: 065

REACTIONS (3)
  - Arterial occlusive disease [Unknown]
  - Intentional product use issue [Unknown]
  - Off label use [Unknown]
